FAERS Safety Report 7002636-0 (Version None)
Quarter: 2010Q3

REPORT INFORMATION
  Report Type: 
  Country: None (occurrence: None)
  Receive Date: 20100920
  Receipt Date: 20080204
  Transmission Date: 20110219
  Serious: Yes (Other)
  Sender: FDA-Public Use
  Company Number: US-ASTRAZENECA-2006UW08860

PATIENT
  Age: 415 Month
  Sex: Female
  Weight: 77.1 kg

DRUGS (12)
  1. SEROQUEL [Suspect]
     Indication: INSOMNIA
     Route: 048
     Dates: start: 20000101, end: 20051101
  2. SEROQUEL [Suspect]
     Indication: DEPRESSION
     Route: 048
     Dates: start: 20000101, end: 20051101
  3. SEROQUEL [Suspect]
     Indication: ANXIETY
     Route: 048
     Dates: start: 20000101, end: 20051101
  4. SEROQUEL [Suspect]
     Dosage: DISPENSED 200 - 300 MG
     Route: 048
     Dates: start: 20030103
  5. SEROQUEL [Suspect]
     Dosage: DISPENSED 200 - 300 MG
     Route: 048
     Dates: start: 20030103
  6. SEROQUEL [Suspect]
     Dosage: DISPENSED 200 - 300 MG
     Route: 048
     Dates: start: 20030103
  7. RISPERDAL [Suspect]
     Indication: INSOMNIA
     Dates: start: 20030101
  8. RISPERDAL [Suspect]
     Indication: DEPRESSION
     Dates: start: 20030101
  9. RISPERDAL [Suspect]
     Indication: ANXIETY
     Dates: start: 20030101
  10. CIPRO [Concomitant]
     Dates: start: 20030520
  11. NEURONTIN [Concomitant]
     Dates: start: 20020614
  12. ZOLOFT [Concomitant]
     Dates: start: 20030214

REACTIONS (2)
  - PANCREATITIS [None]
  - PANCREATITIS ACUTE [None]
